FAERS Safety Report 12634863 (Version 1)
Quarter: 2016Q3

REPORT INFORMATION
  Report Type: Other
  Country: IT (occurrence: IT)
  Receive Date: 20160808
  Receipt Date: 20160808
  Transmission Date: 20161109
  Serious: Yes (Death, Other)
  Sender: FDA-Public Use
  Company Number: IT-IGI LABORATORIES, INC.-1055923

PATIENT
  Age: 69 Year
  Sex: Male

DRUGS (3)
  1. ZANTAC [Suspect]
     Active Substance: RANITIDINE HYDROCHLORIDE
     Indication: PREMEDICATION
     Route: 065
     Dates: start: 2010
  2. CETIRIZINE HCL [Suspect]
     Active Substance: CETIRIZINE HYDROCHLORIDE
     Route: 065
     Dates: start: 2010
  3. ULTRAVIST [Suspect]
     Active Substance: IOPROMIDE
     Route: 042
     Dates: start: 20100503, end: 20100503

REACTIONS (12)
  - Drug ineffective for unapproved indication [Unknown]
  - Off label use [Unknown]
  - Cardiac arrest [Fatal]
  - Abdominal pain [Fatal]
  - Product use issue [Fatal]
  - Malaise [Fatal]
  - Loss of consciousness [Fatal]
  - Cardiac fibrillation [Fatal]
  - Anaphylactic shock [Fatal]
  - Wrong patient received medication [Unknown]
  - Dyspnoea [Fatal]
  - Miosis [Fatal]

NARRATIVE: CASE EVENT DATE: 20100503
